FAERS Safety Report 16640796 (Version 3)
Quarter: 2019Q3

REPORT INFORMATION
  Report Type: Spontaneous
  Country: NZ (occurrence: NZ)
  Receive Date: 20190729
  Receipt Date: 20190827
  Transmission Date: 20191004
  Serious: Yes (Other)
  Sender: FDA-Public Use
  Company Number: NZ-BEH-2019104810

PATIENT
  Age: 70 Year
  Sex: Female
  Weight: 54.4 kg

DRUGS (13)
  1. MELATONIN [Concomitant]
     Active Substance: MELATONIN
     Indication: SLEEP DISORDER
     Dosage: 2 MILLIGRAM, NOCTE
     Route: 048
  2. LORATADINE. [Concomitant]
     Active Substance: LORATADINE
     Indication: PREMEDICATION
     Dosage: 10 MILLIGRAM, PREMEDICATION PRE PLATELETS
     Route: 048
  3. PRIVIGEN [Suspect]
     Active Substance: HUMAN IMMUNOGLOBULIN G
     Indication: MYELOFIBROSIS
     Dosage: 55 GRAM (550ML), SINGLE
     Route: 042
     Dates: start: 20190712, end: 20190713
  4. LEVETIRACETAM. [Concomitant]
     Active Substance: LEVETIRACETAM
     Indication: SEIZURE
     Dosage: 500 MILLIGRAM, BID
     Route: 048
  5. CHLORAMPHENICOL [Concomitant]
     Active Substance: CHLORAMPHENICOL
     Dosage: UNK, QD
     Route: 045
  6. ESCITALOPRAM [Concomitant]
     Active Substance: ESCITALOPRAM OXALATE
     Indication: DEPRESSION
     Dosage: 5 MILLIGRAM, QD
     Route: 048
  7. METOPROLOL. [Concomitant]
     Active Substance: METOPROLOL
     Indication: HEART RATE
     Dosage: 95 MILLIGRAM, QD
     Route: 048
  8. PRIVIGEN [Suspect]
     Active Substance: HUMAN IMMUNOGLOBULIN G
     Indication: IMMUNE THROMBOCYTOPENIC PURPURA
     Dosage: UNK
     Route: 042
  9. TRANEXAMIC ACID. [Concomitant]
     Active Substance: TRANEXAMIC ACID
     Indication: HAEMORRHAGE PROPHYLAXIS
     Dosage: 1 GRAM
     Route: 048
  10. PRIVIGEN [Suspect]
     Active Substance: HUMAN IMMUNOGLOBULIN G
     Dosage: UNK
     Route: 042
  11. PREDNISONE. [Concomitant]
     Active Substance: PREDNISONE
     Dosage: 20 MILLIGRAM, QD
  12. DOCUSATE SODIUM;SENNOSIDE A+B [Concomitant]
     Active Substance: DOCUSATE SODIUM\SENNOSIDES A AND B
     Indication: LAXATIVE SUPPORTIVE CARE
     Dosage: 2 TABS, 50MG/8MG, NOCTE
     Route: 048
  13. RUXOLITINIB [Concomitant]
     Active Substance: RUXOLITINIB
     Dosage: 20 MILLIGRAM, BID

REACTIONS (15)
  - Pneumocystis jirovecii pneumonia [Unknown]
  - White blood cells urine positive [Unknown]
  - Urinary tract infection [Unknown]
  - Chest X-ray abnormal [Unknown]
  - Pyrexia [Recovered/Resolved]
  - Enterococcus test positive [Unknown]
  - Clostridium test positive [Unknown]
  - Product use in unapproved indication [Unknown]
  - Oxygen saturation decreased [Recovered/Resolved]
  - Pneumonia viral [Unknown]
  - Clostridium difficile infection [Unknown]
  - Tachycardia [Unknown]
  - No adverse event [Unknown]
  - Fluid overload [Unknown]
  - Lung infection [Unknown]

NARRATIVE: CASE EVENT DATE: 20190713
